FAERS Safety Report 20178473 (Version 1)
Quarter: 2021Q4

REPORT INFORMATION
  Report Type: Spontaneous
  Country: US (occurrence: US)
  Receive Date: 20211214
  Receipt Date: 20211214
  Transmission Date: 20220303
  Serious: Yes (Other)
  Sender: FDA-Public Use
  Company Number: US-AMGEN-USASP2021192688

PATIENT

DRUGS (2)
  1. INFLIXIMAB [Suspect]
     Active Substance: INFLIXIMAB
     Indication: Colitis ulcerative
     Dosage: 5 MILLIGRAM/KILOGRAM
     Route: 065
  2. INFLIXIMAB [Suspect]
     Active Substance: INFLIXIMAB
     Indication: Crohn^s disease
     Dosage: 10 MILLIGRAM/KILOGRAM
     Route: 065

REACTIONS (4)
  - Adverse event [Unknown]
  - Infusion related reaction [Unknown]
  - Drug specific antibody present [Unknown]
  - Infection [Unknown]
